FAERS Safety Report 5946231-0 (Version None)
Quarter: 2008Q4

REPORT INFORMATION
  Report Type: 
  Country: None (occurrence: None)
  Receive Date: 20081106
  Receipt Date: 20081106
  Transmission Date: 20090506
  Serious: Yes (Life-Threatening, Hospitalization)
  Sender: FDA-Public Use
  Company Number: None

PATIENT
  Age: 69 Year
  Sex: Female
  Weight: 61.6892 kg

DRUGS (1)
  1. ZITHROMAX [Suspect]
     Indication: OROPHARYNGEAL PAIN
     Dosage: 2 PILLS ON DAY 1 PO, 1 PILL FOR NEXT 4 DAYS
     Route: 048
     Dates: start: 20080829, end: 20080902

REACTIONS (1)
  - CLOSTRIDIAL INFECTION [None]
